FAERS Safety Report 9797211 (Version 2)
Quarter: 2014Q1

REPORT INFORMATION
  Report Type: Spontaneous
  Country: US (occurrence: US)
  Receive Date: 20140106
  Receipt Date: 20140106
  Transmission Date: 20141002
  Serious: Yes (Disabling)
  Sender: FDA-Public Use
  Company Number: US-GE HEALTHCARE MEDICAL DIAGNOSTICS-OSCN-PR-1007S-0204

PATIENT
  Age: 40 Year
  Sex: Male

DRUGS (11)
  1. OMNISCAN [Suspect]
     Indication: STAPHYLOCOCCAL SEPSIS
     Route: 042
     Dates: start: 20010219, end: 20010219
  2. OMNISCAN [Suspect]
     Indication: PARAPARESIS
     Route: 042
     Dates: start: 20010727, end: 20010727
  3. OMNISCAN [Suspect]
     Indication: ASTHENIA
     Route: 042
     Dates: start: 20001114, end: 20001114
  4. OMNISCAN [Suspect]
     Indication: BACK PAIN
  5. MAGNEVIST [Suspect]
     Indication: PRODUCT USED FOR UNKNOWN INDICATION
     Route: 042
     Dates: start: 20010305, end: 20010305
  6. MAGNEVIST [Suspect]
     Indication: PAIN IN EXTREMITY
     Route: 042
     Dates: start: 20010226, end: 20010226
  7. MAGNEVIST [Suspect]
     Indication: PRODUCT USED FOR UNKNOWN INDICATION
     Route: 042
     Dates: start: 20010307, end: 20010307
  8. MAGNEVIST [Suspect]
     Indication: PRODUCT USED FOR UNKNOWN INDICATION
     Route: 042
     Dates: start: 20010620, end: 20010620
  9. MAGNEVIST [Suspect]
     Indication: OSTEOMYELITIS
     Route: 042
     Dates: start: 20011218, end: 20011218
  10. MAGNEVIST [Suspect]
     Indication: ENDOCARDITIS
     Route: 042
     Dates: start: 20020102, end: 20020102
  11. MAGNEVIST [Suspect]
     Indication: INFECTION

REACTIONS (1)
  - Nephrogenic systemic fibrosis [Not Recovered/Not Resolved]
